FAERS Safety Report 7488171-4 (Version None)
Quarter: 2011Q2

REPORT INFORMATION
  Report Type: 
  Country: None (occurrence: None)
  Receive Date: 20110518
  Receipt Date: 20110511
  Transmission Date: 20111010
  Serious: Yes (Other)
  Sender: FDA-Public Use
  Company Number: GB-ROCHE-776722

PATIENT
  Age: 38 Year
  Sex: Female

DRUGS (2)
  1. PACLITAXEL [Concomitant]
     Route: 065
  2. BEVACIZUMAB [Suspect]
     Route: 065

REACTIONS (2)
  - DRUG INEFFECTIVE [None]
  - DISEASE PROGRESSION [None]
